FAERS Safety Report 7456208-4 (Version None)
Quarter: 2011Q2

REPORT INFORMATION
  Report Type: 
  Country: None (occurrence: None)
  Receive Date: 20110503
  Receipt Date: 20110429
  Transmission Date: 20111010
  Serious: Yes (Death, Hospitalization)
  Sender: FDA-Public Use
  Company Number: US-BRISTOL-MYERS SQUIBB COMPANY-15459076

PATIENT
  Age: 81 Year
  Sex: Male

DRUGS (24)
  1. ENALAPRIL MALEATE [Concomitant]
     Dosage: 20MG TABLET.
     Route: 048
  2. SENNA [Concomitant]
     Indication: CONSTIPATION
     Dosage: PRN
     Route: 048
  3. SIMETHICONE [Concomitant]
     Indication: ABDOMINAL PAIN
     Dosage: QID
     Route: 048
  4. OMEPRAZOLE [Concomitant]
     Dosage: 40MG CAP DELAYED RELEASED
     Route: 048
  5. ZOFRAN [Concomitant]
     Dosage: 8MG TABLET.
     Route: 048
  6. BISACODYL [Concomitant]
     Indication: CONSTIPATION
     Route: 048
  7. BUPIVACAINE [Concomitant]
     Dosage: BUPIVACAINE INFUSION EPIDURAL
  8. HYDROCHLOROTHIAZIDE [Concomitant]
     Route: 048
  9. IPILIMUMAB [Suspect]
     Indication: MALIGNANT MELANOMA
     Route: 042
     Dates: start: 20101012, end: 20101214
  10. OXYCODONE [Concomitant]
     Indication: BREAKTHROUGH PAIN
     Dosage: 1DF=1-2 TABS OXYCODONE SR:40MG EVERY 4HRS,TAB Q8H
     Route: 048
  11. CALCIUM CARBONATE [Concomitant]
     Route: 048
  12. TRIAMTERENE AND HYDROCHLOROTHIAZIDE [Concomitant]
     Dosage: 1DF=37,5-25MG CAP.
     Route: 048
  13. TAMSULOSIN HCL [Concomitant]
     Dosage: .4MG CAP SUSPENDED RELEASE
     Route: 048
  14. POLYETHYLENE GLYCOL [Concomitant]
     Indication: CONSTIPATION
     Dosage: 1-2 TIMES DAILY
     Route: 048
  15. MIRALAX [Concomitant]
     Indication: CONSTIPATION
     Dosage: DAILY
     Route: 048
  16. CITALOPRAM [Concomitant]
     Dosage: 20MG TABLET
     Route: 048
  17. ACETAMINOPHEN AND HYDROCODONE BITARTRATE [Concomitant]
     Indication: BREAKTHROUGH PAIN
     Dosage: 1DF:5-500MG ACTAMINOPHEN 650MG Q6H PRN
     Route: 048
  18. TRIAMTERENE [Concomitant]
     Dosage: 1DF: 37.5MG-25MG
     Route: 048
  19. PREDNISONE [Concomitant]
     Dosage: PREDNISONE TAPER 30MG,20MG,10MG
  20. VITAMIN D [Concomitant]
     Dosage: 1DF=1000 UNITS, 400IU
     Route: 048
  21. COLACE [Concomitant]
     Route: 048
  22. DILAUDID [Concomitant]
  23. FONDAPARINUX SODIUM [Concomitant]
     Route: 058
  24. MIRTAZAPINE [Concomitant]
     Route: 048

REACTIONS (16)
  - PATHOLOGICAL FRACTURE [None]
  - GROIN PAIN [None]
  - SOMNOLENCE [None]
  - FAILURE TO THRIVE [None]
  - URINARY TRACT INFECTION [None]
  - NEOPLASM PROGRESSION [None]
  - NEOPLASM MALIGNANT [None]
  - COLITIS [None]
  - GASTROENTERITIS VIRAL [None]
  - INFECTION [None]
  - METASTASES TO PLEURA [None]
  - METASTASES TO LIVER [None]
  - PNEUMONIA [None]
  - ARTHRALGIA [None]
  - DEHYDRATION [None]
  - LETHARGY [None]
